FAERS Safety Report 17995465 (Version 1)
Quarter: 2020Q3

REPORT INFORMATION
  Report Type: Spontaneous
  Country: CA (occurrence: CA)
  Receive Date: 20200708
  Receipt Date: 20200708
  Transmission Date: 20201103
  Serious: Yes (Hospitalization)
  Sender: FDA-Public Use
  Company Number: CA-TEVA-2020-CA-1797212

PATIENT
  Age: 56 Year
  Sex: Female

DRUGS (6)
  1. OLANZAPINE. [Concomitant]
     Active Substance: OLANZAPINE
  2. HYDROMORPHONE [Concomitant]
     Active Substance: HYDROMORPHONE
  3. NYSTATIN. [Concomitant]
     Active Substance: NYSTATIN
  4. ONDANSETRON [Concomitant]
     Active Substance: ONDANSETRON
  5. ETOPOSIDE LIQ IV 20MG/ML [Suspect]
     Active Substance: ETOPOSIDE
     Route: 042
  6. CISPLATIN INJECTION BP 10MG/10ML,50MG/50ML,100MG/100ML [Suspect]
     Active Substance: CISPLATIN
     Route: 042

REACTIONS (1)
  - Febrile neutropenia [Recovering/Resolving]
